FAERS Safety Report 22316115 (Version 1)
Quarter: 2023Q2

REPORT INFORMATION
  Report Type: Spontaneous
  Country: SI (occurrence: SI)
  Receive Date: 20230512
  Receipt Date: 20230512
  Transmission Date: 20230722
  Serious: Yes (Hospitalization)
  Sender: FDA-Public Use
  Company Number: None

PATIENT
  Age: 77 Year
  Sex: Male

DRUGS (15)
  1. OFEV [Suspect]
     Active Substance: NINTEDANIB
     Indication: Idiopathic pulmonary fibrosis
     Route: 048
     Dates: start: 20230203, end: 20230414
  2. JARDIANCE [Concomitant]
     Active Substance: EMPAGLIFLOZIN
     Indication: Product used for unknown indication
     Dosage: IN THE MORNING
  3. CONCOR COR 1,25 MG [Concomitant]
     Indication: Product used for unknown indication
     Dates: start: 20230123
  4. Thromboreductin  0,5 MG [Concomitant]
     Indication: Product used for unknown indication
     Dosage: IN THE MORNINGS MONDAY-THURSDAY
     Dates: start: 2016
  5. CERSON  5 MG [Concomitant]
     Indication: Product used for unknown indication
     Dates: start: 20230206
  6. ASPIRIN [Concomitant]
     Active Substance: ASPIRIN
     Indication: Product used for unknown indication
     Dosage: IN THE MORNING
     Dates: start: 2016
  7. LYRICA [Concomitant]
     Active Substance: PREGABALIN
     Indication: Product used for unknown indication
     Dosage: IN THE EVENING
  8. ACETAMINOPHEN [Concomitant]
     Active Substance: ACETAMINOPHEN
     Indication: Product used for unknown indication
  9. SOLIFENACIN\TAMSULOSIN [Concomitant]
     Active Substance: SOLIFENACIN\TAMSULOSIN
     Indication: Product used for unknown indication
     Dosage: IN THE MORNING
  10. Edemid 40 MG [Concomitant]
     Indication: Product used for unknown indication
  11. MOVIPREP [Concomitant]
     Active Substance: ASCORBIC ACID\POLYETHYLENE GLYCOL 3350\POTASSIUM CHLORIDE\SODIUM ASCORBATE\SODIUM CHLORIDE\SODIUM SU
     Indication: Product used for unknown indication
     Dates: start: 20230304
  12. MOVIPREP [Concomitant]
     Active Substance: ASCORBIC ACID\POLYETHYLENE GLYCOL 3350\POTASSIUM CHLORIDE\SODIUM ASCORBATE\SODIUM CHLORIDE\SODIUM SU
     Dates: start: 20230313
  13. ALLOPURINOL [Concomitant]
     Active Substance: ALLOPURINOL
     Indication: Product used for unknown indication
  14. LACTULOSE [Concomitant]
     Active Substance: LACTULOSE
     Indication: Product used for unknown indication
     Dates: start: 20230110
  15. Nillar 40 MG [Concomitant]
     Indication: Product used for unknown indication
     Dosage: IN THE MORNINGS

REACTIONS (1)
  - Microcytic anaemia [Not Recovered/Not Resolved]

NARRATIVE: CASE EVENT DATE: 20230316
